FAERS Safety Report 8997743 (Version 4)
Quarter: 2013Q1

REPORT INFORMATION
  Report Type: Spontaneous
  Country: US (occurrence: US)
  Receive Date: 20130104
  Receipt Date: 20130213
  Transmission Date: 20140127
  Serious: Yes (Other)
  Sender: FDA-Public Use
  Company Number: US-AMGEN-USASP2012084293

PATIENT
  Age: 57 Year
  Sex: Male
  Weight: 102.4 kg

DRUGS (3)
  1. PROCRIT [Suspect]
     Indication: ANAEMIA
     Dosage: 40000 UNIT, QWK
     Route: 058
     Dates: start: 20120528
  2. PROCRIT [Suspect]
     Indication: THYMIC CANCER METASTATIC
  3. INDOMETHACIN                       /00003801/ [Concomitant]
     Dosage: UNK

REACTIONS (1)
  - Drug effect decreased [Unknown]
